FAERS Safety Report 4908018-7 (Version None)
Quarter: 2006Q1

REPORT INFORMATION
  Report Type: 
  Country: None (occurrence: None)
  Receive Date: 20060210
  Receipt Date: 20060203
  Transmission Date: 20060701
  Serious: Yes (Life-Threatening, Hospitalization)
  Sender: FDA-Public Use
  Company Number: HR-GLAXOSMITHKLINE-B0409606A

PATIENT
  Age: 69 Year
  Sex: Female

DRUGS (1)
  1. SEROXAT [Suspect]
     Indication: DEPRESSION
     Dosage: 20MG PER DAY
     Route: 048
     Dates: start: 20040517, end: 20050616

REACTIONS (3)
  - ANAEMIA MACROCYTIC [None]
  - NEUTROPENIA [None]
  - THROMBOCYTOPENIA [None]
